FAERS Safety Report 21432566 (Version 2)
Quarter: 2023Q1

REPORT INFORMATION
  Report Type: Spontaneous
  Country: PT (occurrence: PT)
  Receive Date: 20221010
  Receipt Date: 20230113
  Transmission Date: 20230417
  Serious: Yes (Life-Threatening, Hospitalization, Other)
  Sender: FDA-Public Use
  Company Number: None

PATIENT
  Age: 62 Year
  Sex: Female
  Weight: 65 kg

DRUGS (5)
  1. PREDNISOLONE [Suspect]
     Active Substance: PREDNISOLONE
     Indication: Rheumatoid arthritis
     Dosage: 10 MILLIGRAM, PER DAY
     Route: 048
  2. PREDNISOLONE [Suspect]
     Active Substance: PREDNISOLONE
     Dosage: 5 MILLIGRAM, PER DAY
     Route: 048
  3. METHOTREXATE [Suspect]
     Active Substance: METHOTREXATE
     Indication: Rheumatoid arthritis
     Dosage: 7.5 MILLIGRAM, ONCE A WEEK
     Route: 048
  4. LEFLUNOMIDE [Suspect]
     Active Substance: LEFLUNOMIDE
     Indication: Rheumatoid arthritis
     Dosage: 20 MILLIGRAM, PER DAY
     Route: 048
  5. ADALIMUMAB [Suspect]
     Active Substance: ADALIMUMAB
     Indication: Rheumatoid arthritis
     Dosage: UNK 40 MG/0.4ML (ONCE EVERY TWO WEEKS)
     Route: 065

REACTIONS (4)
  - Brain oedema [Recovered/Resolved]
  - Hemiparesis [Recovered/Resolved]
  - Cerebral toxoplasmosis [Recovered/Resolved]
  - Toxoplasmosis [Recovered/Resolved]
